FAERS Safety Report 9524228 (Version 1)
Quarter: 2013Q1

REPORT INFORMATION
  Report Type: Spontaneous
  Country: US (occurrence: None)
  Receive Date: 20130305
  Receipt Date: 20130305
  Transmission Date: 20140127
  Serious: Yes (Other)
  Sender: FDA-Public Use
  Company Number: 163-21880-12031076

PATIENT
  Age: 77 Year
  Sex: Male
  Weight: 70.76 kg

DRUGS (9)
  1. REVLIMID [Suspect]
     Indication: PLASMA CELL MYELOMA
     Dosage: 25 MG, DAILY X 21 DAYS, PO
     Route: 048
     Dates: start: 20100110
  2. DEXAMETHASONE (DEXAMETHASONE) (UNKNOWN) [Concomitant]
  3. ASA (ACETYLSALICYLIC ACID) (UNKNOWN) [Concomitant]
  4. HYDROCODONE/APAP (VICODIN) [Concomitant]
  5. ZOMETA (ZOLEDRONIC ACID) (UKNOWN) [Concomitant]
  6. MIRALAX (MACROGOL) (UNKNOWN) [Concomitant]
  7. COSOPT EYE DROPS (COSOPT) (DROPS) [Concomitant]
  8. FERROUS SULFATE (FERROUS SULFATE) (UNKNOWN) [Concomitant]
  9. LYRICA (PREGABALIN) (UNKNOWN) [Concomitant]

REACTIONS (1)
  - Renal impairment [None]
